FAERS Safety Report 22601549 (Version 3)
Quarter: 2023Q2

REPORT INFORMATION
  Report Type: Spontaneous
  Country: US (occurrence: US)
  Receive Date: 20230614
  Receipt Date: 20230627
  Transmission Date: 20230722
  Serious: No
  Sender: FDA-Public Use
  Company Number: US-PFIZER INC-202300219823

PATIENT
  Age: 58 Year
  Sex: Female

DRUGS (1)
  1. NURTEC ODT [Suspect]
     Active Substance: RIMEGEPANT SULFATE
     Dosage: 75 MG

REACTIONS (4)
  - Poor quality product administered [Unknown]
  - Product physical issue [Unknown]
  - Migraine [Unknown]
  - Malaise [Unknown]
